FAERS Safety Report 23184725 (Version 1)
Quarter: 2023Q4

REPORT INFORMATION
  Report Type: Spontaneous
  Country: ES (occurrence: ES)
  Receive Date: 20231115
  Receipt Date: 20231115
  Transmission Date: 20240109
  Serious: Yes (Death)
  Sender: FDA-Public Use
  Company Number: ES-AMGEN-ESPSP2023199479

PATIENT

DRUGS (5)
  1. PROLIA [Suspect]
     Active Substance: DENOSUMAB
     Indication: Prophylaxis
     Dosage: 60 MILLIGRAM, Q6MO
     Route: 058
  2. SODIUM IODIDE I-131 [Concomitant]
     Active Substance: SODIUM IODIDE I-131
     Indication: Thyroid cancer metastatic
  3. LENVATINIB [Concomitant]
     Active Substance: LENVATINIB
     Indication: Thyroid cancer metastatic
  4. SORAFENIB [Concomitant]
     Active Substance: SORAFENIB
     Indication: Thyroid cancer metastatic
  5. AXITINIB [Concomitant]
     Active Substance: AXITINIB
     Indication: Thyroid cancer metastatic

REACTIONS (2)
  - Death [Fatal]
  - Off label use [Unknown]
